FAERS Safety Report 10026180 (Version 2)
Quarter: 2014Q1

REPORT INFORMATION
  Report Type: Spontaneous
  Country: US (occurrence: US)
  Receive Date: 20140320
  Receipt Date: 20140320
  Transmission Date: 20141002
  Serious: No
  Sender: FDA-Public Use
  Company Number: US-ALLERGAN-1400957US

PATIENT
  Age: 87 Year
  Sex: Female

DRUGS (4)
  1. COMBIGAN[R] [Suspect]
     Indication: INTRAOCULAR PRESSURE INCREASED
     Dosage: 1 GTT, QAM
     Route: 047
     Dates: end: 20140115
  2. LUMIGAN 0.01% [Suspect]
     Indication: INTRAOCULAR PRESSURE INCREASED
     Dosage: 1 GTT, QHS
     Route: 047
     Dates: end: 20140115
  3. GENERIC FOR SYSTANE ULTRA [Concomitant]
     Indication: DRY EYE
     Dosage: UNK
  4. REFRESH OPTIVE [Concomitant]
     Indication: DRY EYE

REACTIONS (7)
  - Drug hypersensitivity [Recovered/Resolved]
  - Scleral hyperaemia [Unknown]
  - Inappropriate schedule of drug administration [Unknown]
  - Eyelid oedema [Recovering/Resolving]
  - Eye pain [Recovering/Resolving]
  - Eye pain [Recovered/Resolved]
  - Photophobia [Recovering/Resolving]
